FAERS Safety Report 10275436 (Version 1)
Quarter: 2014Q2

REPORT INFORMATION
  Report Type: Spontaneous
  Country: US (occurrence: None)
  Receive Date: 20140630
  Receipt Date: 20140630
  Transmission Date: 20141212
  Serious: Yes (Hospitalization)
  Sender: FDA-Public Use
  Company Number: None

PATIENT
  Age: 9 Year
  Sex: Female
  Weight: 39.9 kg

DRUGS (6)
  1. CYTARABINE [Suspect]
     Dates: start: 20140515
  2. DAUNORUBICIN [Suspect]
     Dates: start: 20140522
  3. METHOTREXATE [Suspect]
     Dates: start: 20140522
  4. PEG-L-ASPARAGINASE (K-H) [Suspect]
  5. PREDNISONE [Suspect]
     Dates: start: 20140527
  6. VINCRISTINE SULFATE [Suspect]
     Dates: start: 20140522

REACTIONS (12)
  - Headache [None]
  - Dizziness [None]
  - Blindness [None]
  - Convulsion [None]
  - Apnoea [None]
  - Cerebral haemorrhage [None]
  - Hypertension [None]
  - Mental status changes [None]
  - Posterior reversible encephalopathy syndrome [None]
  - Post procedural complication [None]
  - Cerebrospinal fluid leakage [None]
  - Haemorrhage [None]
